FAERS Safety Report 4654119-0 (Version None)
Quarter: 2005Q2

REPORT INFORMATION
  Report Type: 
  Country: None (occurrence: None)
  Receive Date: 20050404
  Receipt Date: 20041216
  Transmission Date: 20051028
  Serious: No
  Sender: FDA-Public Use
  Company Number: USA041286351

PATIENT
  Age: 45 Year
  Sex: Male

DRUGS (1)
  1. CYMBALTA [Suspect]
     Dosage: 60 MG

REACTIONS (6)
  - DIARRHOEA [None]
  - DIZZINESS [None]
  - EPISTAXIS [None]
  - HEADACHE [None]
  - MEDICATION ERROR [None]
  - VOMITING [None]
